FAERS Safety Report 4649519-9 (Version None)
Quarter: 2005Q2

REPORT INFORMATION
  Report Type: 
  Country: None (occurrence: None)
  Receive Date: 20050331
  Receipt Date: 20050117
  Transmission Date: 20051028
  Serious: No
  Sender: FDA-Public Use
  Company Number: 05P-163-0286846-00

PATIENT
  Age: 53 Year
  Sex: Female
  Weight: 89.8122 kg

DRUGS (14)
  1. HUMIRA [Suspect]
     Indication: RHEUMATOID ARTHRITIS
     Dosage: 40 MG, 1 IN 2 WK, SUBCUTANEOUS
     Route: 058
     Dates: start: 20030101
  2. INSULIN [Concomitant]
  3. INSULIN GLARGINE [Concomitant]
  4. PRINZIDE [Concomitant]
  5. LEVOTHYROXINE SODIUM [Concomitant]
  6. METHOTREXATE [Concomitant]
  7. FOLIC ACID [Concomitant]
  8. ACETYL SALICYLIC ACID USP BAT [Concomitant]
  9. TRAVATAN [Concomitant]
  10. CALCIUM GLUCONATE [Concomitant]
  11. VITAMINS [Concomitant]
  12. OXYCOCET [Concomitant]
  13. LEXAPRO [Concomitant]
  14. FENTANYL [Concomitant]

REACTIONS (1)
  - BLOOD CHOLESTEROL INCREASED [None]
